FAERS Safety Report 6011167-6 (Version None)
Quarter: 2008Q4

REPORT INFORMATION
  Report Type: 
  Country: None (occurrence: None)
  Receive Date: 20081218
  Receipt Date: 20081210
  Transmission Date: 20090506
  Serious: Yes (Hospitalization, Disabling, Other)
  Sender: FDA-Public Use
  Company Number: US-MERCK-0805USA00695

PATIENT
  Age: 74 Year
  Sex: Female
  Weight: 77 kg

DRUGS (2)
  1. FOSAMAX [Suspect]
     Indication: LOWER LIMB FRACTURE
     Route: 048
     Dates: start: 20040901, end: 20070301
  2. FOSAMAX [Suspect]
     Route: 048
     Dates: start: 19950101

REACTIONS (53)
  - ABSCESS [None]
  - ADVERSE DRUG REACTION [None]
  - ANAEMIA POSTOPERATIVE [None]
  - ANKLE FRACTURE [None]
  - ARTHRALGIA [None]
  - BACK PAIN [None]
  - CARDIAC FAILURE CONGESTIVE [None]
  - CELLULITIS [None]
  - CHOLECYSTITIS [None]
  - CHOLELITHIASIS [None]
  - CONTUSION [None]
  - DELIRIUM [None]
  - DENTAL CARIES [None]
  - DIASTOLIC DYSFUNCTION [None]
  - DIVERTICULITIS [None]
  - DIZZINESS [None]
  - DRUG DEPENDENCE [None]
  - DRUG INEFFECTIVE [None]
  - DYSPEPSIA [None]
  - ENDOMETRIAL CANCER [None]
  - FALL [None]
  - FOOT DEFORMITY [None]
  - FRACTURED SACRUM [None]
  - HERPES ZOSTER [None]
  - HYPERCHOLESTEROLAEMIA [None]
  - HYPERLIPIDAEMIA [None]
  - HYPERTENSION [None]
  - HYPOXIA [None]
  - INAPPROPRIATE SCHEDULE OF DRUG ADMINISTRATION [None]
  - JOINT DISLOCATION [None]
  - NERVOUS SYSTEM DISORDER [None]
  - OEDEMA [None]
  - OSTEOARTHRITIS [None]
  - OSTEODYSTROPHY [None]
  - OSTEOMYELITIS [None]
  - OSTEONECROSIS [None]
  - OSTEOPOROSIS [None]
  - OVERDOSE [None]
  - PAIN [None]
  - PELVIC FRACTURE [None]
  - PHARYNGITIS [None]
  - PNEUMONIA [None]
  - PUBIC RAMI FRACTURE [None]
  - RENAL FAILURE [None]
  - ROTATOR CUFF SYNDROME [None]
  - SKIN ULCER [None]
  - SPINAL COLUMN STENOSIS [None]
  - SPINAL OSTEOARTHRITIS [None]
  - SPONDYLOLISTHESIS [None]
  - SYNOVITIS [None]
  - TEMPOROMANDIBULAR JOINT SYNDROME [None]
  - TIBIA FRACTURE [None]
  - UMBILICAL HERNIA [None]
